FAERS Safety Report 5305731-7 (Version None)
Quarter: 2007Q2

REPORT INFORMATION
  Report Type: 
  Country: None (occurrence: None)
  Receive Date: 20070416
  Receipt Date: 20070405
  Transmission Date: 20071010
  Serious: No
  Sender: FDA-Public Use
  Company Number: 2007-156849-NL

PATIENT
  Age: 54 Year
  Sex: Male

DRUGS (1)
  1. TICE BCG [Suspect]
     Indication: TRANSITIONAL CELL CARCINOMA
     Dosage: 120 MG WEEKLY/120 MG OM INTRAVESICAL
     Route: 043

REACTIONS (4)
  - BLOOD CHOLESTEROL INCREASED [None]
  - BLOOD PRESSURE INCREASED [None]
  - GLOMERULONEPHRITIS MEMBRANOUS [None]
  - NEPHROTIC SYNDROME [None]
